FAERS Safety Report 4683505-8 (Version None)
Quarter: 2005Q2

REPORT INFORMATION
  Report Type: 
  Country: None (occurrence: None)
  Receive Date: 20050602
  Receipt Date: 20050323
  Transmission Date: 20051028
  Serious: No
  Sender: FDA-Public Use
  Company Number: 200510576BWH

PATIENT
  Age: 49 Year
  Sex: Male

DRUGS (6)
  1. LEVITRA [Suspect]
     Indication: ERECTILE DYSFUNCTION
     Dosage: 10 MG; 20 MG : TOTAL DAILY, ORAL
     Route: 048
     Dates: start: 20050701
  2. LEVITRA [Suspect]
     Indication: ERECTILE DYSFUNCTION
     Dosage: 10 MG; 20 MG : TOTAL DAILY, ORAL
     Route: 048
     Dates: start: 20050701
  3. LISINOPRIL [Concomitant]
  4. RIBAVIRIN [Concomitant]
  5. GLYBURIDE [Concomitant]
  6. PEG-INTRON [Concomitant]

REACTIONS (1)
  - ERECTILE DYSFUNCTION [None]
